FAERS Safety Report 24626166 (Version 2)
Quarter: 2024Q4

REPORT INFORMATION
  Report Type: Spontaneous
  Country: US (occurrence: US)
  Receive Date: 20241115
  Receipt Date: 20241212
  Transmission Date: 20250115
  Serious: Yes (Death)
  Sender: BRAEBURN PHARMACEUTICALS
  Company Number: US-BRAEBURN-US-BRA-24-001128

PATIENT
  Age: 33 Year
  Sex: Female

DRUGS (2)
  1. BRIXADI [Suspect]
     Active Substance: BUPRENORPHINE
     Indication: Drug dependence
     Dosage: 32 MILLIGRAM, WEEKLY
     Route: 058
     Dates: start: 202312, end: 20240318
  2. BRIXADI [Suspect]
     Active Substance: BUPRENORPHINE
     Indication: Drug use disorder

REACTIONS (1)
  - Road traffic accident [Fatal]

NARRATIVE: CASE EVENT DATE: 20240831
